FAERS Safety Report 6633674-5 (Version None)
Quarter: 2010Q1

REPORT INFORMATION
  Report Type: 
  Country: None (occurrence: None)
  Receive Date: 20100312
  Receipt Date: 20100308
  Transmission Date: 20100710
  Serious: Yes (Death)
  Sender: FDA-Public Use
  Company Number: US-AMGEN-ICO336187

PATIENT
  Sex: Female

DRUGS (20)
  1. DARBEPOETIN ALFA [Suspect]
     Indication: RENAL FAILURE CHRONIC
     Route: 058
     Dates: start: 20070601, end: 20090224
  2. METFORMIN HCL [Concomitant]
     Route: 065
  3. MIRTAZAPINE [Concomitant]
     Route: 065
  4. BUMETANIDE [Concomitant]
     Route: 065
  5. METOCLOPRAMIDE [Concomitant]
     Route: 065
  6. FLUOXETINE [Concomitant]
     Route: 065
  7. METOLAZONE [Concomitant]
     Route: 048
  8. LORAZEPAM [Concomitant]
     Route: 065
  9. DIAZEPAM [Concomitant]
     Route: 065
  10. CARVEDILOL [Concomitant]
     Route: 065
  11. CLONAZEPAM [Concomitant]
     Route: 065
  12. POTASSIUM CHLORIDE [Concomitant]
     Route: 048
  13. ASPIRIN [Concomitant]
     Route: 065
  14. STOOL SOFTENER [Concomitant]
     Route: 065
  15. METHADONE HYDROCHLORIDE [Concomitant]
     Route: 065
  16. FLAVOXATE HYDROCHLORIDE [Concomitant]
     Route: 048
  17. PROPOXYPHENE NAPSYLATE W/ ACETAMINOPHEN [Concomitant]
     Route: 065
  18. LANTUS [Concomitant]
     Route: 065
  19. ZANTAC [Concomitant]
     Route: 065
  20. OXYBUTYNIN [Concomitant]
     Route: 065

REACTIONS (1)
  - CARDIAC ARREST [None]
